FAERS Safety Report 15511814 (Version 1)
Quarter: 2018Q4

REPORT INFORMATION
  Report Type: Spontaneous
  Country: US (occurrence: US)
  Receive Date: 20181010
  Receipt Date: 20181010
  Transmission Date: 20190205
  Serious: No
  Sender: FDA-Public Use
  Company Number: None

PATIENT
  Age: 37 Year
  Sex: Male

DRUGS (1)
  1. GLATIRAMER 40MG PFS INJ (12/BOX) [Suspect]
     Active Substance: GLATIRAMER
     Indication: MULTIPLE SCLEROSIS
     Dates: start: 20180123

REACTIONS (6)
  - Asthenia [None]
  - Fatigue [None]
  - Headache [None]
  - Back pain [None]
  - Neck pain [None]
  - Product dose omission [None]

NARRATIVE: CASE EVENT DATE: 20181008
